FAERS Safety Report 13067745 (Version 1)
Quarter: 2016Q4

REPORT INFORMATION
  Report Type: Spontaneous
  Country: US (occurrence: US)
  Receive Date: 20161228
  Receipt Date: 20161228
  Transmission Date: 20170207
  Serious: No
  Sender: FDA-Public Use
  Company Number: US-ASTRAZENECA-2016SF34137

PATIENT
  Age: 714 Month
  Sex: Male

DRUGS (11)
  1. SENOKOT [Concomitant]
     Active Substance: SENNOSIDES
  2. LISINOPRIL. [Suspect]
     Active Substance: LISINOPRIL
     Indication: BLOOD PRESSURE ABNORMAL
     Route: 048
  3. LACTULOSE. [Concomitant]
     Active Substance: LACTULOSE
  4. DOCUSATE [Concomitant]
     Active Substance: DOCUSATE
  5. OXYCODONE [Concomitant]
     Active Substance: OXYCODONE
     Indication: PAIN
     Route: 002
     Dates: end: 201609
  6. METHADONE [Concomitant]
     Active Substance: METHADONE HYDROCHLORIDE
     Indication: PAIN
     Route: 051
     Dates: end: 201609
  7. DILAUDID [Concomitant]
     Active Substance: HYDROMORPHONE HYDROCHLORIDE
     Indication: PAIN
     Dosage: AS REQUIRED
     Route: 048
     Dates: end: 201609
  8. TORADOL [Concomitant]
     Active Substance: KETOROLAC TROMETHAMINE
     Indication: PAIN
  9. METAMUCIL [Concomitant]
     Active Substance: PLANTAGO SEED
  10. DULCOLAX NOS [Concomitant]
     Active Substance: BISACODYL OR DOCUSATE SODIUM
  11. MOVANTIK [Suspect]
     Active Substance: NALOXEGOL OXALATE
     Indication: PAIN
     Dosage: DAILY
     Route: 048
     Dates: start: 201611

REACTIONS (15)
  - Product use issue [Unknown]
  - Flatulence [Unknown]
  - Headache [Unknown]
  - Pain [Unknown]
  - Hepatic neoplasm [Unknown]
  - Blood urea increased [Recovered/Resolved]
  - Diarrhoea [Unknown]
  - Urinary incontinence [Unknown]
  - Off label use [Unknown]
  - Agitation [Unknown]
  - Peripheral swelling [Unknown]
  - Weight fluctuation [Unknown]
  - Circumstance or information capable of leading to medication error [Unknown]
  - Hepatic enzyme increased [Recovered/Resolved]
  - Blood creatinine increased [Recovered/Resolved]

NARRATIVE: CASE EVENT DATE: 201611
